FAERS Safety Report 5114084-9 (Version None)
Quarter: 2006Q3

REPORT INFORMATION
  Report Type: 
  Country: None (occurrence: None)
  Receive Date: 20060925
  Receipt Date: 20060921
  Transmission Date: 20061208
  Serious: Yes (Hospitalization)
  Sender: FDA-Public Use
  Company Number: US-GLAXOSMITHKLINE-A0621006A

PATIENT
  Age: 16 Year
  Sex: Female

DRUGS (2)
  1. LAMICTAL [Suspect]
     Indication: EPILEPSY
     Route: 048
     Dates: start: 19980101, end: 20060901
  2. TEGRETOL [Suspect]
     Indication: EPILEPSY
     Route: 048

REACTIONS (2)
  - COMPLEX PARTIAL SEIZURES [None]
  - LABORATORY TEST ABNORMAL [None]
